FAERS Safety Report 16674919 (Version 5)
Quarter: 2019Q4

REPORT INFORMATION
  Report Type: Spontaneous
  Country: JP (occurrence: JP)
  Receive Date: 20190806
  Receipt Date: 20191009
  Transmission Date: 20200122
  Serious: Yes (Death)
  Sender: FDA-Public Use
  Company Number: JP-CELGENEUS-JPN-20190801045

PATIENT
  Age: 73 Year
  Sex: Male
  Weight: 47 kg

DRUGS (4)
  1. CARBOPLATIN. [Suspect]
     Active Substance: CARBOPLATIN
     Indication: BRONCHIOLOALVEOLAR CARCINOMA
     Route: 065
     Dates: start: 201905, end: 201906
  2. ABRAXANE [Suspect]
     Active Substance: PACLITAXEL
     Indication: BRONCHIOLOALVEOLAR CARCINOMA
     Dosage: 100 MILLIGRAM/SQ. METER
     Route: 041
     Dates: start: 20190704, end: 20190704
  3. ABRAXANE [Suspect]
     Active Substance: PACLITAXEL
     Indication: NON-SMALL CELL LUNG CANCER
  4. CARBOPLATIN. [Suspect]
     Active Substance: CARBOPLATIN
     Indication: NON-SMALL CELL LUNG CANCER
     Dosage: 350 MILLIGRAM
     Route: 041
     Dates: start: 20190704, end: 20190704

REACTIONS (2)
  - Interstitial lung disease [Fatal]
  - Lung neoplasm malignant [Fatal]

NARRATIVE: CASE EVENT DATE: 20190707
